FAERS Safety Report 9623221 (Version 3)
Quarter: 2013Q4

REPORT INFORMATION
  Report Type: Spontaneous
  Country: IN (occurrence: None)
  Receive Date: 20131010
  Receipt Date: 20131129
  Transmission Date: 20140711
  Serious: Yes (Hospitalization)
  Sender: FDA-Public Use
  Company Number: 2013-17824

PATIENT
  Age: 29 Year
  Sex: Male
  Weight: 59 kg

DRUGS (4)
  1. ASPIRIN-DIPYRIDAMOLE [Suspect]
     Indication: ISCHAEMIC STROKE
     Dosage: UNK UNK, SINGLE, ORAL
     Route: 048
     Dates: start: 20130801, end: 20130808
  2. ASPIRIN-DIPYRIDAMOLE [Suspect]
     Indication: PROPHYLAXIS
     Dosage: UNK UNK, SINGLE, ORAL
     Route: 048
     Dates: start: 20130801, end: 20130808
  3. AGGRENOX [Suspect]
     Indication: ISCHAEMIC STROKE
     Dosage: UNK UNK, SINGLE, ORAL
     Route: 048
     Dates: start: 20130801, end: 20130808
  4. AGGRENOX [Suspect]
     Indication: PROPHYLAXIS
     Dosage: UNK UNK, SINGLE, ORAL
     Route: 048
     Dates: start: 20130801, end: 20130808

REACTIONS (5)
  - Rectal polyp [None]
  - Haemorrhoids [None]
  - Rectal haemorrhage [None]
  - Inflammation [None]
  - Constipation [None]
